FAERS Safety Report 10029584 (Version 1)
Quarter: 2014Q1

REPORT INFORMATION
  Report Type: Spontaneous
  Country: US (occurrence: None)
  Receive Date: 20140320
  Receipt Date: 20140320
  Transmission Date: 20141002
  Serious: Yes (Hospitalization)
  Sender: FDA-Public Use
  Company Number: None

PATIENT
  Age: 85 Year
  Sex: Female

DRUGS (1)
  1. EFFEXOR XR 150MG PFIZER [Suspect]
     Indication: DEPRESSION
     Dosage: 1 TABLET  QD ORAL
     Route: 048
     Dates: start: 20140316

REACTIONS (5)
  - Syncope [None]
  - Ventricular extrasystoles [None]
  - Ventricular tachycardia [None]
  - Product commingling [None]
  - Wrong drug administered [None]
